FAERS Safety Report 4598980-7 (Version None)
Quarter: 2005Q1

REPORT INFORMATION
  Report Type: 
  Country: None (occurrence: None)
  Receive Date: 20050304
  Receipt Date: 20030620
  Transmission Date: 20050727
  Serious: Yes (Hospitalization, Disabling)
  Sender: FDA-Public Use
  Company Number: US-MERCK-0306USA02640

PATIENT
  Age: 72 Year
  Sex: Male

DRUGS (4)
  1. ZOCOR [Suspect]
     Route: 048
     Dates: start: 19980511, end: 19990315
  2. ZOCOR [Suspect]
     Route: 048
     Dates: start: 19970404, end: 19980501
  3. LAC-HYDRIN 12% [Concomitant]
     Route: 061
     Dates: start: 19980507
  4. CUTIVATE [Concomitant]
     Route: 061
     Dates: start: 19980507

REACTIONS (18)
  - ASTHENIA [None]
  - BLOOD GLUCOSE INCREASED [None]
  - C-REACTIVE PROTEIN INCREASED [None]
  - COMPUTERISED TOMOGRAM ABNORMAL [None]
  - COUGH [None]
  - HEAD INJURY [None]
  - LOSS OF CONSCIOUSNESS [None]
  - LUNG DISORDER [None]
  - MALAISE [None]
  - MYOPATHY [None]
  - NUCLEAR MAGNETIC RESONANCE IMAGING ABNORMAL [None]
  - PCO2 INCREASED [None]
  - PO2 DECREASED [None]
  - RED BLOOD CELL SEDIMENTATION RATE INCREASED [None]
  - RHABDOMYOLYSIS [None]
  - SPINAL CORD DISORDER [None]
  - VERTIGO POSITIONAL [None]
  - VIRAL INFECTION [None]
